FAERS Safety Report 7373252-6 (Version None)
Quarter: 2011Q1

REPORT INFORMATION
  Report Type: 
  Country: None (occurrence: None)
  Receive Date: 20110324
  Receipt Date: 20101208
  Transmission Date: 20110831
  Serious: No
  Sender: FDA-Public Use
  Company Number: US-BAYER-2011-001782

PATIENT
  Sex: Female
  Weight: 42 kg

DRUGS (3)
  1. ANTI-ASTHMATICS [Concomitant]
  2. MULTI-VITAMINS [Suspect]
     Indication: VITAMIN SUPPLEMENTATION
  3. ATENOLOL [Concomitant]

REACTIONS (2)
  - FOREIGN BODY [None]
  - THROAT IRRITATION [None]
